FAERS Safety Report 18424688 (Version 1)
Quarter: 2020Q4

REPORT INFORMATION
  Report Type: Spontaneous
  Country: AR (occurrence: AR)
  Receive Date: 20201026
  Receipt Date: 20201026
  Transmission Date: 20210114
  Serious: Yes (Other)
  Sender: FDA-Public Use
  Company Number: AR-SUN PHARMACEUTICAL INDUSTRIES LTD-2020R1-264490

PATIENT
  Age: 33 Year
  Sex: Male

DRUGS (2)
  1. LEVETIRACETAM. [Suspect]
     Active Substance: LEVETIRACETAM
     Indication: CUTIS VERTICIS GYRATA
     Dosage: 3000 MILLIGRAM, DAILY
     Route: 065
  2. VALPROIC ACID. [Suspect]
     Active Substance: VALPROIC ACID
     Indication: CUTIS VERTICIS GYRATA
     Dosage: 1500 MILLIGRAM, DAILY
     Route: 065

REACTIONS (1)
  - Generalised tonic-clonic seizure [Unknown]
